FAERS Safety Report 6307410-6 (Version None)
Quarter: 2009Q3

REPORT INFORMATION
  Report Type: 
  Country: None (occurrence: None)
  Receive Date: 20090813
  Receipt Date: 20090810
  Transmission Date: 20100115
  Serious: Yes (Other)
  Sender: FDA-Public Use
  Company Number: US-ASTRAZENECA-2009UW20163

PATIENT
  Sex: Female
  Weight: 82.6 kg

DRUGS (5)
  1. FASLODEX [Suspect]
     Indication: BREAST CANCER
     Route: 030
     Dates: start: 20090306
  2. ZETIA [Concomitant]
     Indication: BLOOD CHOLESTEROL
     Route: 048
  3. SYNTHROID [Concomitant]
     Indication: THYROID DISORDER
     Route: 048
  4. METOPROLOL [Concomitant]
     Indication: CARDIAC DISORDER
     Route: 048
  5. TRIAMTERENE [Concomitant]
     Indication: BLOOD PRESSURE MANAGEMENT

REACTIONS (3)
  - HALLUCINATION, TACTILE [None]
  - HALLUCINATION, VISUAL [None]
  - VERTIGO [None]
